FAERS Safety Report 7293711-4 (Version None)
Quarter: 2011Q1

REPORT INFORMATION
  Report Type: 
  Country: None (occurrence: None)
  Receive Date: 20110215
  Receipt Date: 20110208
  Transmission Date: 20110831
  Serious: Yes (Hospitalization)
  Sender: FDA-Public Use
  Company Number: B0699934A

PATIENT
  Sex: Male

DRUGS (1)
  1. RETROVIR [Suspect]
     Indication: PROPHYLAXIS
     Route: 048
     Dates: start: 20101020, end: 20101105

REACTIONS (2)
  - OVERDOSE [None]
  - NEUTROPENIA [None]
